FAERS Safety Report 6527450-1 (Version None)
Quarter: 2010Q1

REPORT INFORMATION
  Report Type: 
  Country: None (occurrence: None)
  Receive Date: 20100105
  Receipt Date: 20091222
  Transmission Date: 20100710
  Serious: Yes (Other)
  Sender: FDA-Public Use
  Company Number: AU-MYLANLABS-2009S1021748

PATIENT
  Age: 32 Year
  Sex: Male

DRUGS (1)
  1. PAXTINE [Suspect]
     Indication: DRUG USE FOR UNKNOWN INDICATION
     Route: 048
     Dates: start: 20091220

REACTIONS (3)
  - RESTLESS LEGS SYNDROME [None]
  - RESTLESSNESS [None]
  - SUICIDAL IDEATION [None]
